FAERS Safety Report 16500347 (Version 1)
Quarter: 2019Q3

REPORT INFORMATION
  Report Type: Spontaneous
  Country: US (occurrence: US)
  Receive Date: 20190628
  Receipt Date: 20190628
  Transmission Date: 20191004
  Serious: Yes (Disabling)
  Sender: FDA-Public Use
  Company Number: None

PATIENT
  Age: 25 Year
  Sex: Male
  Weight: 76.5 kg

DRUGS (1)
  1. LEVAFLOXACIN [Suspect]
     Active Substance: LEVOFLOXACIN
     Indication: EAR INFECTION

REACTIONS (13)
  - Palpitations [None]
  - Urethral disorder [None]
  - Alopecia [None]
  - Feeling abnormal [None]
  - Insomnia [None]
  - Disturbance in attention [None]
  - Muscle atrophy [None]
  - Anxiety [None]
  - Vitreous floaters [None]
  - Depression [None]
  - Tendon pain [None]
  - Neuropathy peripheral [None]
  - Tinnitus [None]

NARRATIVE: CASE EVENT DATE: 20181101
